FAERS Safety Report 9215536 (Version 1)
Quarter: 2013Q2

REPORT INFORMATION
  Report Type: Spontaneous
  Country: US (occurrence: US)
  Receive Date: 20130407
  Receipt Date: 20130407
  Transmission Date: 20140414
  Serious: No
  Sender: FDA-Public Use
  Company Number: US-009507513-1304USA002439

PATIENT
  Sex: Male

DRUGS (2)
  1. PEGINTRON [Suspect]
     Indication: HEPATITIS C
     Dosage: FOR 40 WEEKS, QW
     Dates: start: 20120607, end: 20130211
  2. REBETOL [Suspect]

REACTIONS (1)
  - Injection site infection [Unknown]
